FAERS Safety Report 7209362-3 (Version None)
Quarter: 2010Q4

REPORT INFORMATION
  Report Type: 
  Country: None (occurrence: None)
  Receive Date: 20101222
  Receipt Date: 20101207
  Transmission Date: 20110411
  Serious: No
  Sender: FDA-Public Use
  Company Number: 2010-01038

PATIENT
  Sex: Male

DRUGS (1)
  1. ZICAM INTENSE SINUS RELIEF [Suspect]

REACTIONS (1)
  - ANOSMIA [None]
